FAERS Safety Report 16139059 (Version 1)
Quarter: 2019Q2

REPORT INFORMATION
  Report Type: Spontaneous
  Country: FR (occurrence: FR)
  Receive Date: 20190401
  Receipt Date: 20190401
  Transmission Date: 20190711
  Serious: Yes (Life-Threatening, Hospitalization, Other)
  Sender: FDA-Public Use
  Company Number: FR-ACCORD-116525

PATIENT
  Age: 77 Year
  Sex: Male

DRUGS (5)
  1. REVLIMID [Suspect]
     Active Substance: LENALIDOMIDE
     Indication: PLASMA CELL MYELOMA
     Route: 048
     Dates: start: 20150729, end: 20150810
  2. NEODEX (DEXAMETHASONE) [Suspect]
     Active Substance: DEXAMETHASONE
     Indication: PLASMA CELL MYELOMA
     Dosage: 40 MG (1DF, 1CYCLE), ALSO RECEIVED AS 1 DF FROM 28-AUG-2015.
     Route: 048
     Dates: start: 20150729, end: 20150810
  3. VELCADE [Concomitant]
     Active Substance: BORTEZOMIB
     Indication: PLASMA CELL MYELOMA
     Route: 065
     Dates: start: 20150828
  4. ALLOPURINOL. [Suspect]
     Active Substance: ALLOPURINOL
     Indication: PRODUCT USED FOR UNKNOWN INDICATION
     Route: 048
     Dates: start: 20150729, end: 20150810
  5. CEFAZOLIN [Concomitant]
     Active Substance: CEFAZOLIN
     Indication: CHALAZION
     Route: 065
     Dates: start: 201605

REACTIONS (4)
  - Atrial fibrillation [Recovering/Resolving]
  - Toxic skin eruption [Unknown]
  - Toxic epidermal necrolysis [Recovered/Resolved]
  - Haemodialysis [None]

NARRATIVE: CASE EVENT DATE: 20150810
